FAERS Safety Report 9394161 (Version 1)
Quarter: 2013Q3

REPORT INFORMATION
  Report Type: Report from Study
  Country: FR (occurrence: FR)
  Receive Date: 20130710
  Receipt Date: 20130710
  Transmission Date: 20140515
  Serious: Yes (Other)
  Sender: FDA-Public Use
  Company Number: PHHY2013FR071913

PATIENT
  Age: 70 Year
  Sex: Female

DRUGS (9)
  1. NEORAL [Suspect]
     Dates: start: 20111004, end: 20121121
  2. CERTICAN [Suspect]
     Dates: start: 20110224, end: 20111003
  3. CELLCEPT [Suspect]
     Dates: start: 20110214
  4. CORTANCYL [Concomitant]
     Dates: start: 20110621, end: 20110706
  5. CORTANCYL [Concomitant]
     Dates: start: 20121124
  6. CORTANCYL [Concomitant]
     Dates: start: 20110929, end: 20111130
  7. PROGRAF [Concomitant]
     Dates: start: 20121122
  8. SOLUMEDROL [Concomitant]
     Dates: start: 20110926, end: 20110928
  9. SOLUMEDROL [Concomitant]
     Dates: start: 20121122

REACTIONS (3)
  - Renal impairment [Unknown]
  - Metabolic acidosis [Unknown]
  - Blood phosphorus increased [Unknown]
